FAERS Safety Report 7907700-7 (Version None)
Quarter: 2011Q4

REPORT INFORMATION
  Report Type: 
  Country: None (occurrence: None)
  Receive Date: 20111110
  Receipt Date: 20111108
  Transmission Date: 20120403
  Serious: Yes (Life-Threatening)
  Sender: FDA-Public Use
  Company Number: US-SHIONOGI, INC-2011000156

PATIENT

DRUGS (1)
  1. EPINEPHRINE [Suspect]
     Indication: ANAPHYLACTIC SHOCK
     Dosage: UNK
     Dates: start: 20110610

REACTIONS (2)
  - PRODUCT QUALITY ISSUE [None]
  - DEVICE FAILURE [None]
